FAERS Safety Report 6466502-1 (Version None)
Quarter: 2009Q4

REPORT INFORMATION
  Report Type: 
  Country: None (occurrence: None)
  Receive Date: 20091201
  Receipt Date: 20091201
  Transmission Date: 20100525
  Serious: Yes (Hospitalization)
  Sender: FDA-Public Use
  Company Number: None

PATIENT
  Sex: Female
  Weight: 80 kg

DRUGS (1)
  1. AVASTIN [Suspect]
     Indication: BREAST CANCER
     Dosage: 15MG/KG Q 3 WEEKS IV DRIP
     Route: 041

REACTIONS (2)
  - DEHYDRATION [None]
  - GASTROENTERITIS VIRAL [None]
